FAERS Safety Report 7214098-9 (Version None)
Quarter: 2010Q4

REPORT INFORMATION
  Report Type: 
  Country: None (occurrence: None)
  Receive Date: 20101227
  Receipt Date: 20101213
  Transmission Date: 20110411
  Serious: Yes (Hospitalization)
  Sender: FDA-Public Use
  Company Number: 1000017714

PATIENT
  Age: 52 Year
  Sex: Male

DRUGS (2)
  1. ESCITALOPRAM [Suspect]
     Indication: DEPRESSED MOOD
     Dosage: 15 MG (15 MG, 1 IN 1 D)
  2. ZOLPIDEM [Concomitant]

REACTIONS (9)
  - CLAVICLE FRACTURE [None]
  - DIZZINESS [None]
  - FALL [None]
  - FATIGUE [None]
  - GASTROINTESTINAL DISORDER [None]
  - GRAND MAL CONVULSION [None]
  - SOMNOLENCE [None]
  - SPINAL COLUMN INJURY [None]
  - TEMPORAL LOBE EPILEPSY [None]
